FAERS Safety Report 9190094 (Version 1)
Quarter: 2013Q1

REPORT INFORMATION
  Report Type: Spontaneous
  Country: US (occurrence: US)
  Receive Date: 20130326
  Receipt Date: 20130326
  Transmission Date: 20140127
  Serious: No
  Sender: FDA-Public Use
  Company Number: US-PFIZER INC-2013092912

PATIENT
  Age: 70 Year
  Sex: Male

DRUGS (10)
  1. SUTENT [Suspect]
     Dosage: UNK
  2. MICARDIS [Concomitant]
     Dosage: UNK
  3. PROCARDIA [Concomitant]
     Dosage: UNK
  4. PREVACID [Concomitant]
     Dosage: UNK
  5. ZANTAC [Concomitant]
     Dosage: UNK
  6. FISH OIL [Concomitant]
     Dosage: UNK
  7. KEPPRA [Concomitant]
     Dosage: UNK
  8. FLOVENT [Concomitant]
     Dosage: UNK
  9. PRO-AIR [Concomitant]
     Dosage: UNK
  10. SINGULAIR [Concomitant]
     Dosage: UNK

REACTIONS (1)
  - Hyperkeratosis [Unknown]
